FAERS Safety Report 7335816-5 (Version None)
Quarter: 2011Q1

REPORT INFORMATION
  Report Type: 
  Country: None (occurrence: None)
  Receive Date: 20110301
  Receipt Date: 20110301
  Transmission Date: 20110831
  Serious: Yes (Other)
  Sender: FDA-Public Use
  Company Number: None

PATIENT
  Sex: Female
  Weight: 63.5036 kg

DRUGS (1)
  1. ACETAMINOPHEN AND HYDROCODONE BITARTRATE [Suspect]
     Indication: BACK PAIN
     Dosage: 1-2 TABS FOR PAIN EVERY 4-6 HRS DAIL 1-2 TABS FOR PAIN 4-6 HOURS AS NEEDED
     Dates: start: 20110213, end: 20110214

REACTIONS (5)
  - ABDOMINAL PAIN UPPER [None]
  - PRURITUS GENERALISED [None]
  - PRODUCT SUBSTITUTION ISSUE [None]
  - VISION BLURRED [None]
  - DRUG INEFFECTIVE [None]
